FAERS Safety Report 7290822-4 (Version None)
Quarter: 2011Q1

REPORT INFORMATION
  Report Type: 
  Country: None (occurrence: None)
  Receive Date: 20110201
  Receipt Date: 20110114
  Transmission Date: 20110831
  Serious: Yes (Other)
  Sender: FDA-Public Use
  Company Number: IPC201101-000023

PATIENT
  Age: 20 Year
  Sex: Male

DRUGS (8)
  1. ACETYLSALICYLIC ACID [Suspect]
     Dosage: 100 MG DAILY;
  2. CANDESARTAN [Suspect]
     Indication: TYPE 2 DIABETES MELLITUS
     Dosage: 16 MG DAILY;
  3. HEPAGLINIDE [Suspect]
     Indication: TYPE 2 DIABETES MELLITUS
     Dosage: 1 MG THRICE DAILY
  4. EXENATIDE [Suspect]
     Indication: TYPE 2 DIABETES MELLITUS
     Dosage: 5 MICROGRAM TWICE DAILY;
  5. HYDROCHLOROTHIAZIDE [Suspect]
     Dosage: 25 MG DAILY;
  6. METFORMIN HYDROCHLORIDE [Suspect]
     Indication: TYPE 2 DIABETES MELLITUS
     Dosage: 850 MG TWICE DAILY,
  7. ATORVASTATIN [Suspect]
     Dosage: 10 MG DAILY;
  8. MICRONIZED FENOFIBRATE [Suspect]
     Dosage: 145 MG DAILY;

REACTIONS (10)
  - RENAL TUBULAR NECROSIS [None]
  - HYPERTRIGLYCERIDAEMIA [None]
  - RENAL FAILURE ACUTE [None]
  - NO THERAPEUTIC RESPONSE [None]
  - DEHYDRATION [None]
  - NAUSEA [None]
  - HYPOVOLAEMIA [None]
  - VOMITING [None]
  - CONDITION AGGRAVATED [None]
  - BLOOD PH DECREASED [None]
